FAERS Safety Report 6774991-8 (Version None)
Quarter: 2010Q2

REPORT INFORMATION
  Report Type: 
  Country: None (occurrence: None)
  Receive Date: 20100617
  Receipt Date: 20100615
  Transmission Date: 20101027
  Serious: Yes (Hospitalization)
  Sender: FDA-Public Use
  Company Number: A0850949A

PATIENT
  Age: 61 Year
  Sex: Male
  Weight: 104.5 kg

DRUGS (10)
  1. AVANDIA [Suspect]
     Dosage: 8MG PER DAY
     Route: 048
     Dates: start: 19990101
  2. COZAAR [Concomitant]
  3. LANOXIN [Concomitant]
  4. GLUCOPHAGE [Concomitant]
  5. HYDRODIURIL [Concomitant]
  6. ZOCOR [Concomitant]
  7. LOPRESSOR [Concomitant]
  8. STARLIX [Concomitant]
  9. LESCOL [Concomitant]
  10. VERAPAMIL [Concomitant]

REACTIONS (5)
  - CARDIAC DISORDER [None]
  - CARDIAC FAILURE CONGESTIVE [None]
  - CORONARY ARTERY DISEASE [None]
  - PERIPHERAL VASCULAR DISORDER [None]
  - THROMBOSIS [None]
